FAERS Safety Report 16903086 (Version 1)
Quarter: 2019Q4

REPORT INFORMATION
  Report Type: Report from Study
  Country: None (occurrence: GB)
  Receive Date: 20191010
  Receipt Date: 20191010
  Transmission Date: 20200122
  Serious: Yes (Hospitalization, Other)
  Sender: FDA-Public Use
  Company Number: GB-ABBVIE-19K-167-2941150-00

PATIENT
  Sex: Female

DRUGS (1)
  1. DUODOPA [Suspect]
     Active Substance: CARBIDOPA\LEVODOPA
     Indication: PARKINSON^S DISEASE
     Dosage: MORNING DOSE:5MG/1ML, 20MG/1ML;100ML CASSETTE DAILY
     Route: 050

REACTIONS (6)
  - Hallucination [Unknown]
  - Freezing phenomenon [Unknown]
  - Fall [Unknown]
  - Device issue [Unknown]
  - Incorrect dose administered by device [Unknown]
  - Pain [Unknown]

NARRATIVE: CASE EVENT DATE: 2019
